FAERS Safety Report 10172015 (Version 2)
Quarter: 2018Q4

REPORT INFORMATION
  Report Type: Spontaneous
  Country: US (occurrence: US)
  Receive Date: 20140515
  Receipt Date: 20181129
  Transmission Date: 20190204
  Serious: Yes (Other)
  Sender: FDA-Public Use
  Company Number: US-PFIZER INC-2014131395

PATIENT
  Age: 53 Year
  Sex: Female
  Weight: 45 kg

DRUGS (4)
  1. OXYCONTIN [Concomitant]
     Active Substance: OXYCODONE HYDROCHLORIDE
     Dosage: 40 MG, 3X/DAY
  2. GABAPENTIN. [Suspect]
     Active Substance: GABAPENTIN
     Indication: ANEURYSM
     Dosage: 300 MG, 3X/DAY
     Dates: start: 20140406
  3. GABAPENTIN. [Suspect]
     Active Substance: GABAPENTIN
     Indication: PERONEAL NERVE INJURY
     Dosage: 600 MG, 3X/DAY
  4. GABAPENTIN. [Suspect]
     Active Substance: GABAPENTIN
     Dosage: 900 MG, 3X/DAY

REACTIONS (5)
  - Vision blurred [Unknown]
  - Deafness [Unknown]
  - Drug ineffective for unapproved indication [Unknown]
  - Migraine [Unknown]
  - Aphasia [Unknown]

NARRATIVE: CASE EVENT DATE: 20140407
